FAERS Safety Report 9216365 (Version 1)
Quarter: 2013Q2

REPORT INFORMATION
  Report Type: Spontaneous
  Country: HN (occurrence: HN)
  Receive Date: 20130408
  Receipt Date: 20130408
  Transmission Date: 20140414
  Serious: Yes (Hospitalization)
  Sender: FDA-Public Use
  Company Number: PHHY2013HN033400

PATIENT
  Age: 88 Year
  Sex: Female

DRUGS (3)
  1. ACLASTA [Suspect]
     Indication: OSTEOPOROSIS
     Dosage: 5 MG/ 100 ML ANNUAL
     Route: 042
     Dates: start: 201201
  2. CELECOXIB [Concomitant]
     Indication: ARTHRITIS
     Dosage: UNK UKN, PRN
  3. STEROIDS NOS [Concomitant]
     Indication: ARTHRITIS
     Dosage: UNK UKN, PRN

REACTIONS (1)
  - Ischaemic stroke [Recovered/Resolved]
